FAERS Safety Report 11128605 (Version 1)
Quarter: 2015Q2

REPORT INFORMATION
  Report Type: Report from Study
  Country: US (occurrence: US)
  Receive Date: 20150521
  Receipt Date: 20150521
  Transmission Date: 20150821
  Serious: Yes (Other)
  Sender: FDA-Public Use
  Company Number: US-GILEAD-2015-0154138

PATIENT
  Age: 64 Year
  Sex: Female

DRUGS (1)
  1. LEDIPASVIR/SOFOSBUVIR [Suspect]
     Active Substance: LEDIPASVIR\SOFOSBUVIR
     Indication: CHRONIC HEPATITIS C
     Dosage: 1 DF, QD
     Route: 048
     Dates: start: 20150201, end: 20150501

REACTIONS (9)
  - Fatigue [Unknown]
  - Vision blurred [Unknown]
  - Headache [Unknown]
  - Dizziness [Unknown]
  - Pancreatitis [Unknown]
  - Feeling abnormal [Unknown]
  - Diarrhoea [Unknown]
  - Nausea [Unknown]
  - Peripheral swelling [Unknown]
